FAERS Safety Report 7207804-0 (Version None)
Quarter: 2011Q1

REPORT INFORMATION
  Report Type: 
  Country: None (occurrence: None)
  Receive Date: 20110104
  Receipt Date: 20101223
  Transmission Date: 20110831
  Serious: Yes (Hospitalization)
  Sender: FDA-Public Use
  Company Number: US-ASTRAZENECA-2010SE60839

PATIENT
  Age: 73 Year
  Sex: Female
  Weight: 77.1 kg

DRUGS (9)
  1. SEROQUEL [Suspect]
     Indication: INSOMNIA
     Route: 048
  2. ZYPREXA [Concomitant]
  3. METHADONE [Concomitant]
     Indication: PAIN
     Route: 048
  4. MIRALAX [Concomitant]
     Indication: CONSTIPATION
     Dosage: AS REQUIRED
     Route: 048
  5. SEROQUEL [Suspect]
     Route: 048
  6. SEROQUEL [Suspect]
     Route: 048
     Dates: start: 20100101
  7. GABAPENTIN [Concomitant]
     Indication: PAIN
     Route: 048
  8. KLONOPIN [Concomitant]
     Indication: INSOMNIA
     Route: 048
  9. METAMUCIL-2 [Concomitant]
     Indication: CONSTIPATION
     Dosage: AS PER REQUIRED
     Route: 048

REACTIONS (8)
  - HOSPITALISATION [None]
  - INSOMNIA [None]
  - FEELING COLD [None]
  - WEIGHT INCREASED [None]
  - NIGHTMARE [None]
  - CHILLS [None]
  - WRONG TECHNIQUE IN DRUG USAGE PROCESS [None]
  - MEMORY IMPAIRMENT [None]
